FAERS Safety Report 6258224 (Version 6)
Quarter: 2013Q1

REPORT INFORMATION
  Report Type: Report from Study
  Country: FR (occurrence: FR)
  Receive Date: 20060309
  Receipt Date: 20130325
  Transmission Date: 20140127
  Serious: Yes (Death, Life-Threatening, Hospitalization)
  Sender: FDA-Public Use
  Company Number: FR-PFIZER INC-2006029505

PATIENT
  Age: 68 Year
  Sex: Male
  Weight: 69 kg

DRUGS (10)
  1. SUNITINIB MALATE [Suspect]
     Indication: HEPATIC CANCER
     Dosage: 50 MG, 1X/DAY, 4 WEEKS
     Route: 048
     Dates: start: 20060217, end: 20060224
  2. LACTULOSE [Concomitant]
     Dosage: AS NEEDED
     Route: 048
     Dates: start: 200510
  3. GINKOR FORT [Concomitant]
     Route: 048
     Dates: start: 2005
  4. ALDACTONE [Concomitant]
     Route: 048
     Dates: start: 200508
  5. METFORMIN [Concomitant]
     Route: 048
     Dates: start: 2004
  6. ZOCOR [Concomitant]
     Route: 048
     Dates: start: 1991
  7. XATRAL [Concomitant]
     Route: 048
     Dates: start: 200510
  8. TRASICOR [Concomitant]
     Route: 048
     Dates: start: 1991
  9. DIFFU K [Concomitant]
     Route: 048
  10. PERMIXON [Concomitant]
     Route: 048
     Dates: start: 200510

REACTIONS (5)
  - Hepatic encephalopathy [Fatal]
  - Aphasia [Unknown]
  - Balance disorder [Unknown]
  - Somnolence [Unknown]
  - Neurological decompensation [Unknown]
